FAERS Safety Report 8887564 (Version 1)
Quarter: 2012Q4

REPORT INFORMATION
  Report Type: 
  Country: US (occurrence: None)
  Receive Date: 20121101
  Receipt Date: 20121101
  Transmission Date: 20130627
  Serious: Yes (Hospitalization)
  Sender: FDA-Public Use
  Company Number: None

PATIENT
  Sex: Male
  Weight: 35.9 kg

DRUGS (4)
  1. CARBOPLATIN [Suspect]
     Dosage: 440 mg
  2. CYCLOPHOSPHAMIDE [Suspect]
     Dosage: 2100 mg
  3. ETOPOSIDE [Suspect]
     Dosage: 480 mg
  4. G-CSF [Suspect]
     Dosage: 3.6 mg

REACTIONS (5)
  - Neutropenia [None]
  - Fatigue [None]
  - Pyrexia [None]
  - Hypotension [None]
  - Septic shock [None]
